FAERS Safety Report 19376059 (Version 4)
Quarter: 2021Q2

REPORT INFORMATION
  Report Type: Spontaneous
  Country: US (occurrence: US)
  Receive Date: 20210604
  Receipt Date: 20210629
  Transmission Date: 20210717
  Serious: No
  Sender: FDA-Public Use
  Company Number: US-GLAXOSMITHKLINE-US2021AMR119954

PATIENT
  Age: 74 Year
  Sex: Female

DRUGS (1)
  1. ZEJULA [Suspect]
     Active Substance: NIRAPARIB
     Indication: OVARIAN CANCER
     Dosage: 200 MG, QD
     Route: 048
     Dates: start: 20210524

REACTIONS (11)
  - Nausea [Unknown]
  - Tremor [Unknown]
  - Palpitations [Unknown]
  - Blood pressure systolic increased [Unknown]
  - Blood pressure increased [Not Recovered/Not Resolved]
  - Back pain [Unknown]
  - Heart rate increased [Unknown]
  - Asthenia [Unknown]
  - Myalgia [Unknown]
  - Abdominal pain upper [Unknown]
  - Cough [Unknown]

NARRATIVE: CASE EVENT DATE: 20210623
